FAERS Safety Report 17103007 (Version 1)
Quarter: 2019Q4

REPORT INFORMATION
  Report Type: Spontaneous
  Country: SE (occurrence: SE)
  Receive Date: 20191203
  Receipt Date: 20191203
  Transmission Date: 20200122
  Serious: Yes (Hospitalization)
  Sender: FDA-Public Use
  Company Number: SE-SUN PHARMACEUTICAL INDUSTRIES LTD-2019RR-229312

PATIENT
  Age: 19 Year
  Sex: Male

DRUGS (6)
  1. LERGIGAN (PROMETHAZINE HYDROCHLORIDE) [Suspect]
     Active Substance: PROMETHAZINE HYDROCHLORIDE
     Indication: PRODUCT USED FOR UNKNOWN INDICATION
     Dosage: ^KAN MAX HA TAGIT^ 12X25 MG ()
     Route: 048
     Dates: start: 20180329, end: 20180329
  2. OMEPRAZOLE. [Suspect]
     Active Substance: OMEPRAZOLE
     Indication: PRODUCT USED FOR UNKNOWN INDICATION
     Dosage: ^KAN MAX HA TAGIT^ 6 ST ()
     Route: 048
     Dates: start: 20180329, end: 20180329
  3. PROPAVAN [Suspect]
     Active Substance: PROPIOMAZINE
     Indication: PRODUCT USED FOR UNKNOWN INDICATION
     Dosage: ^KAN MAX HA TAGIT^ 6X25 MG ()
     Route: 048
     Dates: start: 20180329, end: 20180329
  4. OLANZAPINE. [Suspect]
     Active Substance: OLANZAPINE
     Indication: PRODUCT USED FOR UNKNOWN INDICATION
     Dosage: ^KAN MAX HA TAGIT^ 6X2,5 MG ()
     Route: 048
     Dates: start: 20180329, end: 20180329
  5. FLUOXETINE [Suspect]
     Active Substance: FLUOXETINE HYDROCHLORIDE
     Indication: PRODUCT USED FOR UNKNOWN INDICATION
     Dosage: ^KAN MAX HA TAGIT^ 6X20 MG ()
     Route: 048
     Dates: start: 20180329, end: 20180329
  6. IMOVANE [Suspect]
     Active Substance: ZOPICLONE
     Indication: PRODUCT USED FOR UNKNOWN INDICATION
     Dosage: ^KAN MAX HA TAGIT^ 6X5 MG ()
     Route: 048
     Dates: start: 20180329, end: 20180329

REACTIONS (3)
  - Depressed level of consciousness [Unknown]
  - Intentional overdose [Unknown]
  - Intentional self-injury [Unknown]

NARRATIVE: CASE EVENT DATE: 20180329
